FAERS Safety Report 24579416 (Version 1)
Quarter: 2024Q4

REPORT INFORMATION
  Report Type: Spontaneous
  Country: FR (occurrence: FR)
  Receive Date: 20241105
  Receipt Date: 20241105
  Transmission Date: 20250115
  Serious: Yes (Hospitalization)
  Sender: DEXCEL
  Company Number: None

PATIENT
  Age: 2 Month
  Sex: Male

DRUGS (1)
  1. CHLORHEXIDINE HYDROCHLORIDE [Suspect]
     Active Substance: CHLORHEXIDINE HYDROCHLORIDE
     Indication: Rhinitis
     Route: 045
     Dates: start: 20240930, end: 20240930

REACTIONS (3)
  - Respiratory distress [Recovered/Resolved]
  - Incorrect route of product administration [Recovered/Resolved]
  - Product confusion [Recovered/Resolved]

NARRATIVE: CASE EVENT DATE: 20240930
